FAERS Safety Report 4806512-0 (Version None)
Quarter: 2005Q4

REPORT INFORMATION
  Report Type: 
  Country: None (occurrence: None)
  Receive Date: 20051019
  Receipt Date: 20051019
  Transmission Date: 20060501
  Serious: Yes (Life-Threatening)
  Sender: FDA-Public Use
  Company Number: None

PATIENT
  Age: 39 Year
  Sex: Female

DRUGS (11)
  1. FERRLECIT [Suspect]
     Indication: ANAEMIA
     Dosage: 250MG   ONCE  IV  (ONE TIME)
     Route: 042
     Dates: start: 20050918, end: 20050918
  2. EPOGEN [Concomitant]
  3. ASCORBIC ACID [Concomitant]
  4. COLACE [Concomitant]
  5. IRON SULFATETHIAMIN COMPOUND TAB [Concomitant]
  6. FOLIC ACIT [Concomitant]
  7. MULTI-VITAMIN [Concomitant]
  8. BACTROBAN [Concomitant]
  9. IBUPROFEN [Concomitant]
  10. COMPAZINE [Concomitant]
  11. SUDAFED 12 HOUR [Concomitant]

REACTIONS (5)
  - DYSPNOEA [None]
  - FEELING ABNORMAL [None]
  - INFUSION RELATED REACTION [None]
  - RASH [None]
  - URTICARIA [None]
